FAERS Safety Report 9527608 (Version 1)
Quarter: 2013Q3

REPORT INFORMATION
  Report Type: Spontaneous
  Country: US (occurrence: None)
  Receive Date: 20130913
  Receipt Date: 20130913
  Transmission Date: 20140515
  Serious: No
  Sender: FDA-Public Use
  Company Number: None

PATIENT
  Age: 54 Year
  Sex: Female
  Weight: 83.01 kg

DRUGS (1)
  1. TERBINAFINE [Suspect]
     Indication: ONYCHOMYCOSIS
     Route: 048
     Dates: start: 20130818, end: 20130828

REACTIONS (4)
  - Influenza like illness [None]
  - Abnormal dreams [None]
  - Headache [None]
  - Dysgeusia [None]
